FAERS Safety Report 19980934 (Version 1)
Quarter: 2021Q4

REPORT INFORMATION
  Report Type: Spontaneous
  Country: US (occurrence: US)
  Receive Date: 20211021
  Receipt Date: 20211021
  Transmission Date: 20220303
  Serious: Yes (Other)
  Sender: FDA-Public Use
  Company Number: US-PFIZER INC-202101353987

PATIENT
  Age: 42 Year
  Sex: Female
  Weight: 57.61 kg

DRUGS (1)
  1. DIFLUCAN [Suspect]
     Active Substance: FLUCONAZOLE
     Indication: Fungal infection
     Dosage: 400 MG, DAILY
     Dates: start: 202108, end: 20211005

REACTIONS (1)
  - Behcet^s syndrome [Unknown]
